FAERS Safety Report 7264730-9 (Version None)
Quarter: 2011Q1

REPORT INFORMATION
  Report Type: 
  Country: None (occurrence: None)
  Receive Date: 20110131
  Receipt Date: 20110124
  Transmission Date: 20110831
  Serious: Yes (Hospitalization)
  Sender: FDA-Public Use
  Company Number: US-JNJFOC-20060906245

PATIENT
  Sex: Female
  Weight: 91 kg

DRUGS (2)
  1. RISPERDAL [Suspect]
     Indication: DEPRESSION
     Route: 048
  2. RISPERDAL [Suspect]
     Indication: PSYCHOTIC DISORDER
     Route: 048

REACTIONS (3)
  - WEIGHT INCREASED [None]
  - TYPE 1 DIABETES MELLITUS [None]
  - DIABETIC KETOACIDOSIS [None]
